FAERS Safety Report 15539084 (Version 1)
Quarter: 2018Q4

REPORT INFORMATION
  Report Type: Spontaneous
  Country: BR (occurrence: BR)
  Receive Date: 20181022
  Receipt Date: 20181022
  Transmission Date: 20190205
  Serious: Yes (Other)
  Sender: FDA-Public Use
  Company Number: BR-TEIKOKU PHARMA USA-TPU2018-00640

PATIENT
  Sex: Female

DRUGS (1)
  1. TOPERMA [Suspect]
     Active Substance: LIDOCAINE
     Indication: CHRONIC INFLAMMATORY DEMYELINATING POLYRADICULONEUROPATHY
     Route: 062
     Dates: start: 2017

REACTIONS (1)
  - Myocardial infarction [Unknown]
